FAERS Safety Report 8756747 (Version 2)
Quarter: 2012Q4

REPORT INFORMATION
  Report Type: 
  Country: US (occurrence: US)
  Receive Date: 20120828
  Receipt Date: 20121115
  Transmission Date: 20130627
  Serious: Yes (Hospitalization)
  Sender: FDA-Public Use
  Company Number: US-BAYER-2012-086850

PATIENT
  Age: 40 Year
  Sex: Female
  Weight: 65.76 kg

DRUGS (6)
  1. OCELLA [Suspect]
     Indication: CONTRACEPTION
     Dosage: UNK
     Dates: start: 20090511, end: 20100528
  2. OCELLA [Suspect]
     Indication: ENDOMETRIOSIS
  3. LISINOPRIL [Concomitant]
     Indication: HYPERTENSION
     Dosage: UNK
     Dates: start: 2007
  4. MOTRIN [Concomitant]
     Dosage: UNK
     Dates: start: 2007
  5. LABETALOL [Concomitant]
     Indication: HYPERTENSION
     Dosage: UNK;PRN
  6. LUPRON - SLOW RELEASE [Concomitant]

REACTIONS (5)
  - Vena cava thrombosis [None]
  - Mesenteric vein thrombosis [None]
  - Portal vein thrombosis [None]
  - Dizziness [None]
  - Muscle spasms [None]
